FAERS Safety Report 7701193-0 (Version None)
Quarter: 2011Q3

REPORT INFORMATION
  Report Type: 
  Country: None (occurrence: None)
  Receive Date: 20110822
  Receipt Date: 20110805
  Transmission Date: 20111222
  Serious: Yes (Death, Hospitalization)
  Sender: FDA-Public Use
  Company Number: US-GLAXOSMITHKLINE-A0873511A

PATIENT
  Age: 65 Year
  Sex: Male

DRUGS (8)
  1. DETROL [Concomitant]
  2. LEVOTHYROXINE SODIUM [Concomitant]
  3. AVANDAMET [Suspect]
     Indication: DIABETES MELLITUS
     Route: 048
  4. LANTUS [Concomitant]
  5. NEXIUM [Concomitant]
  6. AVANDIA [Suspect]
     Indication: DIABETES MELLITUS
     Dosage: 4MG PER DAY
     Route: 048
     Dates: start: 20011106, end: 20050119
  7. ASPIRIN [Concomitant]
  8. HUMALOG [Concomitant]

REACTIONS (3)
  - THALAMIC INFARCTION [None]
  - DEATH [None]
  - MYOCARDIAL INFARCTION [None]
